FAERS Safety Report 6788290-1 (Version None)
Quarter: 2010Q2

REPORT INFORMATION
  Report Type: 
  Country: None (occurrence: None)
  Receive Date: 20100623
  Receipt Date: 20080214
  Transmission Date: 20101027
  Serious: No
  Sender: FDA-Public Use
  Company Number: US-PFIZER INC-2008005253

PATIENT
  Age: 23 Year
  Sex: Male
  Weight: 90.72 kg

DRUGS (3)
  1. GEODON [Suspect]
     Indication: SCHIZOAFFECTIVE DISORDER
     Dates: start: 20071101
  2. COGENTIN [Concomitant]
  3. KLONOPIN [Concomitant]

REACTIONS (2)
  - NAUSEA [None]
  - VOMITING [None]
